FAERS Safety Report 8000377-4 (Version None)
Quarter: 2011Q4

REPORT INFORMATION
  Report Type: 
  Country: None (occurrence: None)
  Receive Date: 20111222
  Receipt Date: 20111213
  Transmission Date: 20120403
  Serious: Yes (Hospitalization)
  Sender: FDA-Public Use
  Company Number: US-BAYER-201029727NA

PATIENT
  Age: 21 Year
  Sex: Female
  Weight: 59 kg

DRUGS (6)
  1. NAPROXEN [Concomitant]
     Dosage: 550 MG, UNK
     Dates: start: 20080829, end: 20080910
  2. CIPROFLOXACIN [Concomitant]
     Dosage: 250 MG, UNK
     Dates: start: 20080829, end: 20080910
  3. SULFAMETHOXAZOLE [Concomitant]
     Dosage: UNK
     Dates: start: 20080907
  4. YASMIN [Suspect]
     Indication: CONTRACEPTION
     Dosage: UNK
     Route: 048
     Dates: start: 20060829, end: 20080714
  5. DROSPIRENONE AND ETHINYL ESTRADIOL [Suspect]
     Indication: CONTRACEPTION
     Dosage: UNK
     Route: 048
     Dates: start: 20080714, end: 20080910
  6. BACTRIM [Concomitant]

REACTIONS (4)
  - VENOUS OCCLUSION [None]
  - RENAL FAILURE [None]
  - PELVIC VENOUS THROMBOSIS [None]
  - DEEP VEIN THROMBOSIS [None]
